FAERS Safety Report 6860165-9 (Version None)
Quarter: 2010Q3

REPORT INFORMATION
  Report Type: 
  Country: None (occurrence: None)
  Receive Date: 20100720
  Receipt Date: 20100707
  Transmission Date: 20110219
  Serious: Yes (Hospitalization)
  Sender: FDA-Public Use
  Company Number: US-SANOFI-AVENTIS-2010SA039721

PATIENT
  Age: 37 Year
  Sex: Female
  Weight: 109 kg

DRUGS (10)
  1. LOVENOX [Suspect]
     Route: 058
     Dates: start: 20080209, end: 20080209
  2. HEPARIN [Suspect]
     Dosage: DOSE:5000 UNIT(S)
     Route: 058
     Dates: start: 20080209, end: 20080211
  3. HEPARIN [Suspect]
     Route: 051
     Dates: start: 20080213, end: 20080213
  4. IPRATROPIUM BROMIDE/SALBUTAMOL SULFATE [Concomitant]
  5. FLONASE [Concomitant]
  6. ALBUTEROL [Concomitant]
  7. ADVAIR DISKUS 100/50 [Concomitant]
  8. PREDNISONE [Concomitant]
  9. PULMICORT [Concomitant]
  10. ALBUTEROL SULFATE AND IPRATROPIUM BROMIDE [Concomitant]

REACTIONS (8)
  - CONTUSION [None]
  - ESCHERICHIA URINARY TRACT INFECTION [None]
  - GASTROINTESTINAL HAEMORRHAGE [None]
  - HAEMATURIA [None]
  - NAUSEA [None]
  - PYREXIA [None]
  - THROMBOTIC THROMBOCYTOPENIC PURPURA [None]
  - VOMITING [None]
